FAERS Safety Report 21310813 (Version 1)
Quarter: 2022Q3

REPORT INFORMATION
  Report Type: Spontaneous
  Country: JP (occurrence: JP)
  Receive Date: 20220909
  Receipt Date: 20220909
  Transmission Date: 20221027
  Serious: Yes (Hospitalization)
  Sender: FDA-Public Use
  Company Number: JP-TAKEDA-2022TJP058907

PATIENT
  Age: 65 Year
  Sex: Male
  Weight: 67 kg

DRUGS (9)
  1. CABOMETYX [Suspect]
     Active Substance: CABOZANTINIB S-MALATE
     Indication: Renal cancer metastatic
     Dosage: 40 MG, QD
     Route: 048
     Dates: start: 20220224, end: 20220401
  2. CABOMETYX [Suspect]
     Active Substance: CABOZANTINIB S-MALATE
     Dosage: 20 MG, QOD
     Route: 048
     Dates: start: 20220506, end: 20220519
  3. CELESTAMINE [Concomitant]
     Active Substance: BETAMETHASONE\DEXCHLORPHENIRAMINE MALEATE
     Indication: Pruritus
     Dosage: 1 DOSAGE FORM, BID
     Route: 048
  4. PREDONINE [Concomitant]
     Active Substance: PREDNISOLONE
     Indication: Adrenal insufficiency
     Dosage: 5 MILLIGRAM, BID
     Route: 048
  5. URSO [Concomitant]
     Active Substance: URSODIOL
     Indication: Prophylaxis
     Dosage: 50 MILLIGRAM, TID
     Route: 048
  6. Glycyron [Concomitant]
     Indication: Prophylaxis
     Dosage: 1 DOSAGE FORM, TID
     Route: 048
  7. SENNOSIDES A AND B [Concomitant]
     Active Substance: SENNOSIDES A AND B
     Indication: Constipation
     Dosage: 12 MILLIGRAM, QD
     Route: 048
  8. AMLODIPINE BESYLATE [Concomitant]
     Active Substance: AMLODIPINE BESYLATE
     Indication: Hypertension
     Dosage: 2.5 MILLIGRAM, QD
     Route: 048
  9. MAGNESIUM OXIDE [Concomitant]
     Active Substance: MAGNESIUM OXIDE
     Indication: Constipation
     Dosage: 250 MILLIGRAM, TID
     Route: 048

REACTIONS (5)
  - Jaundice [Recovered/Resolved]
  - Hepatic function abnormal [Recovered/Resolved]
  - Malaise [Unknown]
  - Oedema peripheral [Unknown]
  - Decreased appetite [Unknown]

NARRATIVE: CASE EVENT DATE: 20220310
